FAERS Safety Report 19864572 (Version 1)
Quarter: 2021Q3

REPORT INFORMATION
  Report Type: Spontaneous
  Country: US (occurrence: US)
  Receive Date: 20210922
  Receipt Date: 20210922
  Transmission Date: 20211014
  Serious: No
  Sender: FDA-Public Use
  Company Number: US-JNJFOC-20210936158

PATIENT
  Age: 60 Year
  Sex: Female

DRUGS (1)
  1. IMODIUM A?D [Suspect]
     Active Substance: LOPERAMIDE HYDROCHLORIDE
     Indication: DIARRHOEA
     Route: 048

REACTIONS (7)
  - Adverse event [Not Recovered/Not Resolved]
  - Eructation [Unknown]
  - Taste disorder [Not Recovered/Not Resolved]
  - Abdominal distension [Unknown]
  - Abdominal pain upper [Unknown]
  - Infrequent bowel movements [Unknown]
  - Hiccups [Unknown]

NARRATIVE: CASE EVENT DATE: 20210915
